FAERS Safety Report 22301222 (Version 1)
Quarter: 2023Q2

REPORT INFORMATION
  Report Type: Spontaneous
  Country: US (occurrence: US)
  Receive Date: 20230509
  Receipt Date: 20230509
  Transmission Date: 20230721
  Serious: No
  Sender: FDA-Public Use
  Company Number: US-SA-2023SA038745

PATIENT
  Age: 57 Year
  Sex: Female
  Weight: 106.5 kg

DRUGS (1)
  1. DUPIXENT [Suspect]
     Active Substance: DUPILUMAB
     Dosage: 300 MG
     Route: 058

REACTIONS (3)
  - Dyspnoea [Unknown]
  - Oxygen saturation abnormal [Unknown]
  - Myalgia [Unknown]
